FAERS Safety Report 23162165 (Version 1)
Quarter: 2023Q4

REPORT INFORMATION
  Report Type: Spontaneous
  Country: US (occurrence: US)
  Receive Date: 20231109
  Receipt Date: 20231109
  Transmission Date: 20240109
  Serious: No
  Sender: FDA-Public Use
  Company Number: US-COHERUS BIOSCIENCES, Inc.-2023-COH-US000517

PATIENT

DRUGS (3)
  1. CIMERLI [Suspect]
     Active Substance: RANIBIZUMAB-EQRN
     Indication: Macular degeneration
     Dosage: 0.5 MG
     Dates: start: 20231002
  2. AVASTIN [Suspect]
     Active Substance: BEVACIZUMAB
     Indication: Product used for unknown indication
     Dosage: UNK
     Dates: end: 20231002
  3. VITAMINS [Concomitant]
     Active Substance: VITAMINS
     Dosage: UNK, DAILY

REACTIONS (2)
  - Vitreous haemorrhage [Not Recovered/Not Resolved]
  - Vision blurred [Not Recovered/Not Resolved]

NARRATIVE: CASE EVENT DATE: 20231002
